FAERS Safety Report 12755969 (Version 1)
Quarter: 2016Q3

REPORT INFORMATION
  Report Type: Spontaneous
  Country: US (occurrence: US)
  Receive Date: 20160916
  Receipt Date: 20160916
  Transmission Date: 20161109
  Serious: No
  Sender: FDA-Public Use
  Company Number: US-BAUSCH-BL-2016-018110

PATIENT
  Sex: Male

DRUGS (1)
  1. TROPICAMIDE OPHTHALMIC SOLUTION USP 1% [Suspect]
     Active Substance: TROPICAMIDE
     Indication: PRODUCT USED FOR UNKNOWN INDICATION
     Route: 065
     Dates: start: 201607

REACTIONS (2)
  - Mydriasis [Unknown]
  - Cycloplegia [Unknown]

NARRATIVE: CASE EVENT DATE: 201607
